FAERS Safety Report 5015130-3 (Version None)
Quarter: 2006Q2

REPORT INFORMATION
  Report Type: 
  Country: None (occurrence: None)
  Receive Date: 20060530
  Receipt Date: 20060518
  Transmission Date: 20061013
  Serious: Yes (Other)
  Sender: FDA-Public Use
  Company Number: 2006AP000391

PATIENT
  Age: 66 Year
  Sex: Female

DRUGS (2)
  1. CEFAZOLIN SODIUM [Suspect]
     Indication: KNEE ARTHROPLASTY
     Dosage: 500 MG; Q12H; IM
     Route: 030
  2. METAMIZOLE [Concomitant]

REACTIONS (2)
  - SKIN EXFOLIATION [None]
  - TYPE IV HYPERSENSITIVITY REACTION [None]
